FAERS Safety Report 5287552-7 (Version None)
Quarter: 2007Q1

REPORT INFORMATION
  Report Type: 
  Country: None (occurrence: None)
  Receive Date: 20070126
  Receipt Date: 20061108
  Transmission Date: 20070707
  Serious: No
  Sender: FDA-Public Use
  Company Number: 2006CT000962

PATIENT
  Age: 76 Year
  Sex: Female
  Weight: 49.9 kg

DRUGS (15)
  1. VENTAVIS [Suspect]
     Indication: PULMONARY HYPERTENSION
     Dosage: 2.5 UG;5XD;INH
     Route: 055
     Dates: start: 20060713, end: 20061107
  2. BUMEX [Concomitant]
  3. PANTOPRAZOLE [Concomitant]
  4. HYDROXYUREA [Concomitant]
  5. NEFAZODONE HCL [Concomitant]
  6. PREDNISONE TAB [Concomitant]
  7. TRIAMCINOLONE [Concomitant]
  8. GLIPIZIDE [Concomitant]
  9. SPIRONOLACTONE [Concomitant]
  10. DIGOXIN [Concomitant]
  11. POTASSIUM ACETATE [Concomitant]
  12. VICODIN [Concomitant]
  13. DILTIAZEM [Concomitant]
  14. LEVOXYL [Concomitant]
  15. QVAR 40 [Concomitant]

REACTIONS (2)
  - ASTHENIA [None]
  - HEADACHE [None]
